FAERS Safety Report 9807890 (Version 2)
Quarter: 2014Q1

REPORT INFORMATION
  Report Type: Spontaneous
  Country: GB (occurrence: GB)
  Receive Date: 20140110
  Receipt Date: 20140110
  Transmission Date: 20141002
  Serious: Yes (Other)
  Sender: FDA-Public Use
  Company Number: GB-VERTEX PHARMACEUTICALS INC-2013-011154

PATIENT
  Age: 53 Year
  Sex: Female
  Weight: 84.8 kg

DRUGS (6)
  1. INCIVO [Suspect]
     Indication: HEPATITIS C
     Dosage: 750 MG, TID
     Route: 048
     Dates: start: 20121029, end: 20130517
  2. PEGASYS [Suspect]
     Indication: HEPATITIS C
     Dosage: DOSAGE FORM: UNSPECIFIED
     Route: 058
     Dates: end: 20130517
  3. PEGASYS [Suspect]
     Dosage: DOSAGE FORM: UNSPECIFIED
     Route: 058
     Dates: start: 20121001
  4. COPEGUS [Suspect]
     Indication: HEPATITIS C
     Dosage: 200 MG, QD
     Dates: start: 20121217, end: 20130517
  5. COPEGUS [Suspect]
     Dosage: 400 MG, QD
     Dates: start: 20121001, end: 20121217
  6. COPEGUS [Suspect]
     Dosage: 400 MG, UNK
     Dates: start: 20131217, end: 20130517

REACTIONS (2)
  - Virologic failure [Unknown]
  - Off label use [Unknown]
